FAERS Safety Report 22230086 (Version 1)
Quarter: 2023Q2

REPORT INFORMATION
  Report Type: Other
  Country: US (occurrence: None)
  Receive Date: 20230419
  Receipt Date: 20230419
  Transmission Date: 20230722
  Serious: Yes (Hospitalization, Other)
  Sender: FDA-Public Use
  Company Number: US-ROCHE-3330669

PATIENT
  Age: 57 Year
  Sex: Female
  Weight: 65.376 kg

DRUGS (12)
  1. OCREVUS [Suspect]
     Active Substance: OCRELIZUMAB
     Indication: Relapsing-remitting multiple sclerosis
     Route: 042
     Dates: start: 20180807
  2. OCREVUS [Suspect]
     Active Substance: OCRELIZUMAB
     Indication: Primary progressive multiple sclerosis
     Dosage: 300 MG AT DAY 1 AND DAY 14 THEN 600 MG EVERY 6 MONTH
     Route: 042
  3. PAXLOVID [Suspect]
     Active Substance: NIRMATRELVIR\RITONAVIR
     Indication: COVID-19
     Route: 065
     Dates: start: 202208
  4. DALFAMPRIDINE [Concomitant]
     Active Substance: DALFAMPRIDINE
  5. BACLOFEN [Concomitant]
     Active Substance: BACLOFEN
  6. GABAPENTIN [Concomitant]
     Active Substance: GABAPENTIN
  7. FLONASE [Concomitant]
     Active Substance: FLUTICASONE PROPIONATE
  8. NITROFURANTOIN [Concomitant]
     Active Substance: NITROFURANTOIN
  9. CRANBERRY [Concomitant]
     Active Substance: CRANBERRY
  10. VITAMIN D3;VITAMIN K2 [Concomitant]
  11. TYSABRI [Concomitant]
     Active Substance: NATALIZUMAB
  12. COPAXONE [Concomitant]
     Active Substance: GLATIRAMER ACETATE

REACTIONS (14)
  - Herpes zoster [Recovered/Resolved with Sequelae]
  - Meningitis [Recovered/Resolved]
  - Loss of consciousness [Recovered/Resolved]
  - Pulmonary mass [Not Recovered/Not Resolved]
  - Influenza A virus test positive [Recovered/Resolved]
  - Memory impairment [Not Recovered/Not Resolved]
  - Cough [Not Recovered/Not Resolved]
  - Sleep apnoea syndrome [Not Recovered/Not Resolved]
  - Osteopenia [Not Recovered/Not Resolved]
  - COVID-19 [Recovered/Resolved]
  - Neuralgia [Not Recovered/Not Resolved]
  - Sinusitis [Recovered/Resolved]
  - Diarrhoea [Recovered/Resolved]
  - Dehydration [Recovered/Resolved]

NARRATIVE: CASE EVENT DATE: 20210101
